FAERS Safety Report 6480563-5 (Version None)
Quarter: 2009Q4

REPORT INFORMATION
  Report Type: 
  Country: None (occurrence: None)
  Receive Date: 20091208
  Receipt Date: 20091130
  Transmission Date: 20100525
  Serious: Yes (Other)
  Sender: FDA-Public Use
  Company Number: AU-MERCK-0909USA02855

PATIENT
  Age: 76 Year
  Sex: Male
  Weight: 82 kg

DRUGS (9)
  1. JANUVIA [Suspect]
     Indication: DIABETES MELLITUS
     Route: 048
     Dates: start: 20090723, end: 20090915
  2. AVAPRO [Concomitant]
     Route: 065
  3. GLIMEL [Concomitant]
     Route: 065
  4. LIPITOR [Concomitant]
     Route: 065
  5. MAREVAN [Concomitant]
     Route: 065
  6. ATENOLOL [Concomitant]
     Route: 065
  7. PRESSIN [Concomitant]
     Route: 065
  8. RAMIPRIL [Concomitant]
     Route: 065
  9. VASOCARDOL CD [Concomitant]
     Route: 065

REACTIONS (2)
  - COUGH [None]
  - OEDEMA PERIPHERAL [None]
